FAERS Safety Report 10224118 (Version 2)
Quarter: 2014Q2

REPORT INFORMATION
  Report Type: Report from Study
  Country: ES (occurrence: ES)
  Receive Date: 20140609
  Receipt Date: 20140609
  Transmission Date: 20141212
  Serious: Yes (Death, Other)
  Sender: FDA-Public Use
  Company Number: ES-CELGENEUS-144-21880-14050496

PATIENT
  Sex: 0

DRUGS (3)
  1. REVLIMID [Suspect]
     Indication: HODGKIN^S DISEASE
     Dosage: 20 MILLIGRAM
     Route: 048
  2. REVLIMID [Suspect]
     Dosage: 20 MILLIGRAM
     Route: 048
  3. CYCLOPHOSPHAMIDE [Suspect]
     Indication: HODGKIN^S DISEASE
     Route: 065

REACTIONS (18)
  - Toxicity to various agents [Fatal]
  - Hodgkin^s disease [Fatal]
  - Neutropenia [Unknown]
  - Thrombocytopenia [Unknown]
  - Anaemia [Unknown]
  - Lymphopenia [Unknown]
  - Infection [Unknown]
  - Pneumonia [Recovered/Resolved]
  - Hepatitis cholestatic [Recovering/Resolving]
  - Transaminases increased [Recovered/Resolved]
  - Bacteraemia [Recovered/Resolved]
  - Neuropathy peripheral [Unknown]
  - Constipation [Unknown]
  - Rash [Unknown]
  - Asthenia [Unknown]
  - Vomiting [Unknown]
  - Arthralgia [Unknown]
  - Anxiety [Unknown]
